FAERS Safety Report 6965458-2 (Version None)
Quarter: 2010Q3

REPORT INFORMATION
  Report Type: 
  Country: None (occurrence: None)
  Receive Date: 20100903
  Receipt Date: 20100901
  Transmission Date: 20110219
  Serious: Yes (Life-Threatening)
  Sender: FDA-Public Use
  Company Number: B0579911A

PATIENT
  Sex: Female
  Weight: 73 kg

DRUGS (5)
  1. LAPATINIB [Suspect]
     Indication: BREAST CANCER
     Dosage: 1250MG PER DAY
     Dates: start: 20081204, end: 20090124
  2. CAPECITABINE [Suspect]
     Indication: BREAST CANCER
     Dosage: 3000MG PER DAY
     Dates: start: 20081204, end: 20090114
  3. PROCAPTAN [Concomitant]
     Dosage: 5MG UNKNOWN
  4. MINITRAN [Concomitant]
     Dosage: 5MG UNKNOWN
  5. UNKNOWN DRUG [Concomitant]

REACTIONS (2)
  - CHEST PAIN [None]
  - PULMONARY MICROEMBOLI [None]
